FAERS Safety Report 9448356 (Version 2)
Quarter: 2013Q3

REPORT INFORMATION
  Report Type: Spontaneous
  Country: US (occurrence: US)
  Receive Date: 20130808
  Receipt Date: 20130919
  Transmission Date: 20140515
  Serious: Yes (Hospitalization)
  Sender: FDA-Public Use
  Company Number: US-PFIZER INC-2013226510

PATIENT
  Age: 63 Year
  Sex: Female
  Weight: 54.42 kg

DRUGS (16)
  1. BICILLIN C-R/C-R 900/300 [Suspect]
     Indication: RHEUMATIC FEVER
     Dosage: UNK(1.2 MILLION UNITS), MONTHLY
  2. COUMADINE [Interacting]
     Indication: DEEP VEIN THROMBOSIS
     Dosage: 15 MG, WEEKLY
  3. COUMADINE [Interacting]
     Dosage: 5 MG, WEEKLY
     Dates: start: 2013
  4. VITAMIN K [Suspect]
     Indication: INTERNATIONAL NORMALISED RATIO ABNORMAL
     Dosage: UNK
     Dates: start: 2013
  5. XANAX [Concomitant]
     Indication: ANXIETY
     Dosage: 1 MG, EVERY 6 HOURS
  6. ZOLOFT [Concomitant]
     Indication: DEPRESSION
     Dosage: UNK, 1X/DAY
  7. MORPHINE [Concomitant]
     Indication: PAIN
     Dosage: 30 MG, 2X/DAY
  8. MS CONTIN [Concomitant]
     Indication: PAIN
     Dosage: 60 MG, 2X/DAY
  9. SLOW-K [Concomitant]
     Dosage: 8 MG, 2X/DAY
  10. CALCITRIOL [Concomitant]
     Dosage: 0.25 MG, 1X/DAY
  11. COREG [Concomitant]
     Dosage: 12.5 MG, 1X/DAY
  12. PRILOSEC [Concomitant]
     Dosage: 20 MG, 1X/DAY
  13. FLOVENT [Concomitant]
     Dosage: UNK, 2X/DAY
  14. COMBIVENT [Concomitant]
     Dosage: UNK
  15. LASIX [Concomitant]
     Dosage: 40 MG, 1X/DAY
  16. ALBUTEROL NEBULIZER [Concomitant]
     Dosage: UNK, 2X/DAY

REACTIONS (7)
  - Fall [Unknown]
  - Hip fracture [Unknown]
  - Pelvic organ injury [Unknown]
  - Cardiac disorder [Unknown]
  - Peripheral vascular disorder [Unknown]
  - International normalised ratio increased [Unknown]
  - Drug interaction [Unknown]
